FAERS Safety Report 4917675-0 (Version None)
Quarter: 2006Q1

REPORT INFORMATION
  Report Type: 
  Country: None (occurrence: None)
  Receive Date: 20060221
  Receipt Date: 20060213
  Transmission Date: 20060701
  Serious: Yes (Other)
  Sender: FDA-Public Use
  Company Number: US-ROCHE-436462

PATIENT
  Age: 55 Year
  Sex: Male
  Weight: 78.5 kg

DRUGS (4)
  1. PEGASYS [Suspect]
     Route: 058
     Dates: start: 20051005, end: 20060201
  2. COPEGUS [Suspect]
     Route: 048
     Dates: start: 20051005, end: 20060201
  3. 1 CONCOMITANT DRUG [Concomitant]
     Indication: HYPERTENSION
     Dosage: DRUG WAS REPOTED AS ANTI-HYPERTENSIVE NOS.
     Route: 048
  4. 1 CONCOMITANT DRUG [Concomitant]
     Dosage: DRUG WAS REPORTED AS DIABETES MEDICATION NOS.

REACTIONS (1)
  - HEPATIC NEOPLASM [None]
